FAERS Safety Report 25192822 (Version 2)
Quarter: 2025Q2

REPORT INFORMATION
  Report Type: Report from Study
  Country: GB (occurrence: GB)
  Receive Date: 20250414
  Receipt Date: 20250416
  Transmission Date: 20250716
  Serious: Yes (Hospitalization)
  Sender: NOVARTIS
  Company Number: GB-002147023-NVSC2025GB060043

PATIENT
  Age: 52 Year
  Sex: Male

DRUGS (2)
  1. MAYZENT [Suspect]
     Active Substance: SIPONIMOD
     Indication: Secondary progressive multiple sclerosis
     Dosage: 2 MG, QD
     Route: 048
     Dates: start: 20231016, end: 20250410
  2. MAYZENT [Suspect]
     Active Substance: SIPONIMOD
     Indication: Multiple sclerosis

REACTIONS (2)
  - Cerebrovascular accident [Unknown]
  - Seizure [Unknown]

NARRATIVE: CASE EVENT DATE: 20250410
